FAERS Safety Report 9344439 (Version 1)
Quarter: 2013Q2

REPORT INFORMATION
  Report Type: Report from Study
  Country: DE (occurrence: DE)
  Receive Date: 20130612
  Receipt Date: 20130612
  Transmission Date: 20140414
  Serious: Yes (Other)
  Sender: FDA-Public Use
  Company Number: DE-B.I. PHARMACEUTICALS,INC./RIDGEFIELD-2013-DE-01467DE

PATIENT
  Age: 2 Year
  Sex: Male
  Weight: 12 kg

DRUGS (1)
  1. SIFROL [Suspect]
     Dosage: 1 ANZ
     Route: 048
     Dates: start: 20130526, end: 20130526

REACTIONS (2)
  - Accidental exposure to product by child [Recovered/Resolved]
  - Fatigue [Recovered/Resolved]
